FAERS Safety Report 17184808 (Version 1)
Quarter: 2019Q4

REPORT INFORMATION
  Report Type: Spontaneous
  Country: US (occurrence: US)
  Receive Date: 20191220
  Receipt Date: 20191220
  Transmission Date: 20200122
  Serious: Yes (Hospitalization, Other)
  Sender: FDA-Public Use
  Company Number: US-PFIZER INC-2019546538

PATIENT
  Age: 44 Year
  Sex: Female

DRUGS (1)
  1. NEURONTIN [Suspect]
     Active Substance: GABAPENTIN
     Indication: MULTIPLE SCLEROSIS
     Dosage: 600 MG, 1X/DAY
     Dates: start: 19960306

REACTIONS (7)
  - Peptic ulcer [Unknown]
  - Intentional product misuse [Unknown]
  - Weight decreased [Unknown]
  - Product use in unapproved indication [Unknown]
  - Off label use [Unknown]
  - Squamous cell carcinoma of lung [Unknown]
  - Muscle spasms [Unknown]

NARRATIVE: CASE EVENT DATE: 19960306
